FAERS Safety Report 10016256 (Version 2)
Quarter: 2014Q2

REPORT INFORMATION
  Report Type: Report from Study
  Country: US (occurrence: US)
  Receive Date: 20140317
  Receipt Date: 20140403
  Transmission Date: 20141212
  Serious: Yes (Hospitalization)
  Sender: FDA-Public Use
  Company Number: US-BRISTOL-MYERS SQUIBB COMPANY-20417184

PATIENT
  Age: 77 Year
  Sex: Female
  Weight: 77.1 kg

DRUGS (6)
  1. BLINDED: NIVOLUMAB [Suspect]
     Indication: METASTATIC MALIGNANT MELANOMA
     Dosage: INTRPTD 10FEB14
     Route: 042
     Dates: start: 20140210
  2. IPILIMUMAB [Suspect]
     Indication: METASTATIC MALIGNANT MELANOMA
     Dosage: 1DF: 146.2 UNITS NOS?INTRPTD 10FEB14
     Route: 042
     Dates: start: 20140210
  3. BLINDED: PLACEBO [Suspect]
     Indication: METASTATIC MALIGNANT MELANOMA
  4. ACETAMINOPHEN [Concomitant]
  5. ZOFRAN [Concomitant]
     Dates: start: 20140214, end: 20140224
  6. POTASSIUM [Concomitant]
     Dates: start: 20140214, end: 20140224

REACTIONS (1)
  - Colitis [Recovered/Resolved]
